FAERS Safety Report 21083512 (Version 2)
Quarter: 2022Q3

REPORT INFORMATION
  Report Type: Spontaneous
  Country: US (occurrence: US)
  Receive Date: 20220714
  Receipt Date: 20220729
  Transmission Date: 20221026
  Serious: Yes (Hospitalization)
  Sender: FDA-Public Use
  Company Number: US-TEVA-2022-US-2053933

PATIENT
  Age: 49 Year
  Sex: Female

DRUGS (5)
  1. PREDNISONE [Suspect]
     Active Substance: PREDNISONE
     Indication: Pyoderma gangrenosum
     Dosage: ON ALTERNATE DAYS
     Route: 065
  2. PREDNISONE [Suspect]
     Active Substance: PREDNISONE
     Indication: Skin disorder
  3. DAPSONE [Concomitant]
     Active Substance: DAPSONE
     Indication: Pyoderma gangrenosum
     Route: 065
  4. DAPSONE [Concomitant]
     Active Substance: DAPSONE
     Indication: Skin disorder
  5. ALBUTEROL [Concomitant]
     Active Substance: ALBUTEROL
     Indication: Asthma
     Route: 065

REACTIONS (13)
  - Rebound effect [Recovering/Resolving]
  - Pyoderma gangrenosum [Recovering/Resolving]
  - Skin disorder [Recovering/Resolving]
  - Lung disorder [Recovered/Resolved]
  - Abscess [Recovering/Resolving]
  - Vasculitis [Recovering/Resolving]
  - Abscess limb [Recovering/Resolving]
  - Lung abscess [Recovering/Resolving]
  - Enterococcal infection [Recovering/Resolving]
  - Beta haemolytic streptococcal infection [Recovering/Resolving]
  - Escherichia infection [Recovering/Resolving]
  - Streptococcal infection [Recovering/Resolving]
  - Peptostreptococcus infection [Recovering/Resolving]
